FAERS Safety Report 8284999-1 (Version None)
Quarter: 2012Q2

REPORT INFORMATION
  Report Type: 
  Country: None (occurrence: None)
  Receive Date: 20120413
  Receipt Date: 20111003
  Transmission Date: 20120825
  Serious: No
  Sender: FDA-Public Use
  Company Number: US-ASTRAZENECA-2011SE59016

PATIENT
  Age: 30 Year
  Sex: Female
  Weight: 70.3 kg

DRUGS (2)
  1. NEXIUM [Suspect]
     Indication: GASTROOESOPHAGEAL REFLUX DISEASE
     Route: 048
  2. OTHER MEDICATION [Concomitant]

REACTIONS (5)
  - NERVOUSNESS [None]
  - NON-CARDIAC CHEST PAIN [None]
  - DRUG DOSE OMISSION [None]
  - ABDOMINAL PAIN UPPER [None]
  - OESOPHAGEAL PAIN [None]
